FAERS Safety Report 15772436 (Version 1)
Quarter: 2018Q4

REPORT INFORMATION
  Report Type: Report from Study
  Country: AR (occurrence: AR)
  Receive Date: 20181228
  Receipt Date: 20181228
  Transmission Date: 20190205
  Serious: Yes (Death, Hospitalization)
  Sender: FDA-Public Use
  Company Number: AR-SA-2018SA114500

PATIENT
  Age: 69 Year
  Sex: Female

DRUGS (8)
  1. PARACETAMOL;PSEUDOEPHEDRINE [Concomitant]
     Dosage: UNK
  2. INSULIN GLARGINE [Suspect]
     Active Substance: INSULIN GLARGINE
     Indication: TYPE 2 DIABETES MELLITUS
     Dosage: 40 IU,QD
     Route: 058
     Dates: start: 20170210
  3. MEPLAR [Concomitant]
     Dosage: UNK
  4. SINTROM [Concomitant]
     Active Substance: ACENOCOUMAROL
     Dosage: UNK
  5. AMIODARONE [Concomitant]
     Active Substance: AMIODARONE
     Dosage: UNK
  6. INSULIN GLARGINE [Suspect]
     Active Substance: INSULIN GLARGINE
     Dosage: 95 IU, QD
     Route: 058
     Dates: start: 2017
  7. LOSARTAN. [Concomitant]
     Active Substance: LOSARTAN
     Dosage: UNK
  8. TRAPAX [Concomitant]
     Active Substance: LORAZEPAM
     Dosage: UNK

REACTIONS (7)
  - Dehydration [Unknown]
  - Malaise [Unknown]
  - Hypotension [Unknown]
  - Organ failure [Fatal]
  - Genital haemorrhage [Unknown]
  - Gingival bleeding [Unknown]
  - White blood cell count increased [Not Recovered/Not Resolved]

NARRATIVE: CASE EVENT DATE: 2017
